FAERS Safety Report 6938561-0 (Version None)
Quarter: 2010Q3

REPORT INFORMATION
  Report Type: 
  Country: None (occurrence: None)
  Receive Date: 20100824
  Receipt Date: 20100818
  Transmission Date: 20110219
  Serious: Yes (Death)
  Sender: FDA-Public Use
  Company Number: US-CELGENEUS-163-CCAZA-10081731

PATIENT
  Age: 69 Year
  Sex: Female

DRUGS (2)
  1. AZACITIDINE [Suspect]
     Indication: MYELODYSPLASTIC SYNDROME
     Route: 058
     Dates: start: 20100405, end: 20100507
  2. VORINOSTAT [Suspect]
     Indication: MYELODYSPLASTIC SYNDROME
     Route: 048
     Dates: start: 20100405, end: 20100507

REACTIONS (3)
  - BRONCHOPULMONARY ASPERGILLOSIS [None]
  - MYOCARDIAL INFARCTION [None]
  - SEPSIS [None]
